FAERS Safety Report 21693544 (Version 1)
Quarter: 2022Q4

REPORT INFORMATION
  Report Type: Spontaneous
  Country: CH (occurrence: CH)
  Receive Date: 20221207
  Receipt Date: 20221207
  Transmission Date: 20230112
  Serious: Yes (Other)
  Sender: FDA-Public Use
  Company Number: None

PATIENT
  Age: 58 Year
  Sex: Male

DRUGS (10)
  1. LYRICA [Interacting]
     Active Substance: PREGABALIN
     Indication: Neuralgia
     Dosage: 300 MILLIGRAM,QD(LYRICA(PREGABALIN),TAKEN ORALLY 300 MG PER DAY FROM 28- MAR-2022 UNTIL 16-AUG
     Route: 048
     Dates: start: 20220328, end: 20220816
  2. SILDENAFIL [Interacting]
     Active Substance: SILDENAFIL
     Indication: Erectile dysfunction
     Dosage: 1 DOSAGE FORM,PRN(SILDENAFIL,TAKEN ORALLY PRN SINCE AN UNKNOWN DATE UNTIL FURTHER NOTICE(NO MORE
     Route: 048
  3. VARDENAFIL HYDROCHLORIDE [Interacting]
     Active Substance: VARDENAFIL HYDROCHLORIDE
     Indication: Erectile dysfunction
     Dosage: 1 DOSAGE FORM,PRN(VIVANZA(VARDENAFIL),TAKEN ORALLY PRN SINCE AN UNKNOWN DATE UNTIL FURTHER NOTICE
     Route: 048
  4. OCREVUS [Concomitant]
     Active Substance: OCRELIZUMAB
     Dosage: 600 MILLIGRAM,Q6 MONTHS(OCREVUS(OCRELIZUMAB),600 MG EVERY 6 MONTHS,INTRAVENOUS THERAPY,MOST
     Route: 042
  5. DALFAMPRIDINE [Concomitant]
     Active Substance: DALFAMPRIDINE
     Dosage: 10 MILLIGRAM, BID (FAMPYRA (FAMPRIDIN) 10 MG 1-0-1-0)
     Route: 048
  6. TIZANIDINE [Concomitant]
     Active Substance: TIZANIDINE
     Dosage: 1 DOSAGE FORM, Q8H (SIRDALUD (TIZANIDIN) 4 MG ? 4 MG - 12 MG)
     Route: 048
  7. CALCIUM\CHOLECALCIFEROL [Concomitant]
     Active Substance: CALCIUM\CHOLECALCIFEROL
     Dosage: 1 DOSAGE FORM, QD (CALCIMAGON-D3 (CALCIUM / VITAMIN D3), 1 DOSAGE UNIT PER DAY)
     Route: 065
  8. POLYETHYLENE GLYCOLS [Concomitant]
     Active Substance: POLYETHYLENE GLYCOLS
     Dosage: 1 DOSAGE FORM, QD (MACROGOL (EXACT PRODUCT NOT KNOWN), 1 DOSAGE UNIT PER DAY)
     Route: 048
  9. TAMSULOSIN HYDROCHLORIDE [Concomitant]
     Active Substance: TAMSULOSIN HYDROCHLORIDE
     Dosage: 400 MICROGRAM, QD (PRADIF (TAMSULOSIN) 400 MCG 1-0-0-0)
     Route: 048
  10. MAGNESIUM [Concomitant]
     Active Substance: MAGNESIUM
     Dosage: 1 DOSAGE FORM, QD (MAGNESIUM (EXACT PRODUCT NOT KNOWN), 1 DOSAGE UNIT PER DAY)
     Route: 048

REACTIONS (3)
  - Drug interaction [Unknown]
  - Therapeutic product effect decreased [Unknown]
  - Erectile dysfunction [Unknown]

NARRATIVE: CASE EVENT DATE: 20220401
